FAERS Safety Report 6551148-7 (Version None)
Quarter: 2010Q1

REPORT INFORMATION
  Report Type: 
  Country: None (occurrence: None)
  Receive Date: 20100121
  Receipt Date: 20100107
  Transmission Date: 20100710
  Serious: Yes (Other)
  Sender: FDA-Public Use
  Company Number: DE-1180373

PATIENT
  Age: 82 Year
  Sex: Female

DRUGS (5)
  1. BETAXOLOL HCL [Suspect]
     Dosage: OPHTHALMIC
     Route: 047
  2. LATANOPROST [Concomitant]
  3. CLONID-OPHTAL (CLONIDINE HYDROCHLORIDE) [Concomitant]
  4. PILOCARPINE [Concomitant]
  5. CLONIDINE [Concomitant]

REACTIONS (1)
  - CEREBROVASCULAR ACCIDENT [None]
